FAERS Safety Report 23983618 (Version 1)
Quarter: 2024Q2

REPORT INFORMATION
  Report Type: Report from Study
  Country: US (occurrence: US)
  Receive Date: 20240618
  Receipt Date: 20240618
  Transmission Date: 20240715
  Serious: Yes (Other)
  Sender: FDA-Public Use
  Company Number: US-BIOGEN-2024BI01268901

PATIENT
  Age: 34 Year
  Sex: Female

DRUGS (1)
  1. TYSABRI [Suspect]
     Active Substance: NATALIZUMAB
     Indication: Multiple sclerosis
     Route: 050
     Dates: start: 20150407, end: 20240112

REACTIONS (7)
  - Epilepsy [Unknown]
  - Hypoaesthesia [Not Recovered/Not Resolved]
  - Cardiovascular disorder [Unknown]
  - Skin discolouration [Unknown]
  - Dehydration [Unknown]
  - Multiple sclerosis relapse [Unknown]
  - Blood magnesium decreased [Unknown]

NARRATIVE: CASE EVENT DATE: 20240601
